FAERS Safety Report 9629996 (Version 1)
Quarter: 2013Q4

REPORT INFORMATION
  Report Type: Spontaneous
  Country: US (occurrence: US)
  Receive Date: 20131017
  Receipt Date: 20131017
  Transmission Date: 20140711
  Serious: Yes (Hospitalization)
  Sender: FDA-Public Use
  Company Number: US-ACTAVIS-2013-18002

PATIENT
  Age: 66 Year
  Sex: Female

DRUGS (4)
  1. CITALOPRAM (UNKNOWN) [Suspect]
     Indication: ANXIETY
     Dosage: 10 MG, DAILY
     Route: 048
     Dates: end: 2010
  2. SYNTHROID [Concomitant]
     Indication: PRODUCT USED FOR UNKNOWN INDICATION
     Dosage: UNK
     Route: 065
  3. DIOVAN [Concomitant]
     Indication: PRODUCT USED FOR UNKNOWN INDICATION
     Dosage: UNK
  4. TAMOXIFEN [Concomitant]
     Indication: PRODUCT USED FOR UNKNOWN INDICATION
     Dosage: UNK

REACTIONS (2)
  - Palpitations [Recovered/Resolved]
  - Paraesthesia [Recovered/Resolved]
